FAERS Safety Report 17983387 (Version 1)
Quarter: 2020Q3

REPORT INFORMATION
  Report Type: Spontaneous
  Country: US (occurrence: US)
  Receive Date: 20200706
  Receipt Date: 20200706
  Transmission Date: 20201103
  Serious: Yes (Other)
  Sender: FDA-Public Use
  Company Number: US-BAYER-2020-128043

PATIENT
  Sex: Male

DRUGS (1)
  1. AFRIN ORIGINAL [Suspect]
     Active Substance: OXYMETAZOLINE HYDROCHLORIDE
     Dosage: 2 TO 3 SPRAY IN EACH NOSTRIL
     Route: 045

REACTIONS (2)
  - Sinus disorder [Recovered/Resolved]
  - Drug dependence [Recovered/Resolved]
